FAERS Safety Report 4439547-0 (Version None)
Quarter: 2004Q3

REPORT INFORMATION
  Report Type: 
  Country: None (occurrence: None)
  Receive Date: 20040901
  Receipt Date: 20040901
  Transmission Date: 20050211
  Serious: Yes (Hospitalization)
  Sender: FDA-Public Use
  Company Number: None

PATIENT
  Sex: Female
  Weight: 63.5036 kg

DRUGS (2)
  1. ATIVAN [Suspect]
     Indication: AGITATION
     Dosage: 0.5 MG PO
     Route: 048
     Dates: start: 20040316
  2. ZYPREXA [Concomitant]

REACTIONS (2)
  - FALL [None]
  - LETHARGY [None]
